FAERS Safety Report 5280061-0 (Version None)
Quarter: 2007Q1

REPORT INFORMATION
  Report Type: 
  Country: None (occurrence: None)
  Receive Date: 20061229
  Receipt Date: 20061023
  Transmission Date: 20070707
  Serious: Yes (Other)
  Sender: FDA-Public Use
  Company Number: 2006UW20380

PATIENT
  Age: 69 Year
  Sex: Female
  Weight: 68.038 kg

DRUGS (3)
  1. CRESTOR [Suspect]
     Indication: BLOOD CHOLESTEROL INCREASED
     Dosage: 10 MG QD PO
     Route: 048
     Dates: start: 20060401
  2. FOSAMAX [Concomitant]
  3. VITAMINS [Concomitant]

REACTIONS (5)
  - CONFUSIONAL STATE [None]
  - DIZZINESS [None]
  - MUSCLE FATIGUE [None]
  - MUSCLE SPASMS [None]
  - TREMOR [None]
